FAERS Safety Report 9345531 (Version 3)
Quarter: 2013Q3

REPORT INFORMATION
  Report Type: Spontaneous
  Country: GB (occurrence: GB)
  Receive Date: 20130613
  Receipt Date: 20130802
  Transmission Date: 20140515
  Serious: Yes (Other)
  Sender: FDA-Public Use
  Company Number: GB-JNJFOC-20130600832

PATIENT
  Sex: Male

DRUGS (2)
  1. XEPLION [Suspect]
     Indication: BIPOLAR DISORDER
     Route: 030
     Dates: start: 20120814, end: 20130624
  2. XEPLION [Suspect]
     Indication: BIPOLAR DISORDER
     Route: 030

REACTIONS (1)
  - Depression [Recovering/Resolving]
